FAERS Safety Report 11486828 (Version 2)
Quarter: 2015Q3

REPORT INFORMATION
  Report Type: Spontaneous
  Country: GB (occurrence: GB)
  Receive Date: 20150909
  Receipt Date: 20150924
  Transmission Date: 20151125
  Serious: Yes (Death, Hospitalization)
  Sender: FDA-Public Use
  Company Number: PHHY2015GB105007

PATIENT
  Age: 72 Year
  Sex: Female

DRUGS (16)
  1. PHENERGAN [Concomitant]
     Active Substance: PROMETHAZINE HYDROCHLORIDE
     Indication: DRUG ERUPTION
     Dosage: AT BEDTIME.
     Route: 048
  2. COCODAMOL [Concomitant]
     Active Substance: ACETAMINOPHEN\CODEINE PHOSPHATE
     Indication: PRODUCT USED FOR UNKNOWN INDICATION
     Dosage: 30MG/500MG 1 OR 2 FOUR TIMES A DAY.
     Route: 048
  3. LEVETIRACETAM. [Concomitant]
     Active Substance: LEVETIRACETAM
     Indication: EPILEPSY
     Route: 048
  4. NAPROXEN. [Concomitant]
     Active Substance: NAPROXEN
     Indication: PRODUCT USED FOR UNKNOWN INDICATION
     Route: 048
     Dates: start: 20141003
  5. AMLODIPINE [Concomitant]
     Active Substance: AMLODIPINE BESYLATE
     Indication: PRODUCT USED FOR UNKNOWN INDICATION
     Route: 048
  6. FOLIC ACID. [Concomitant]
     Active Substance: FOLIC ACID
     Indication: RHEUMATOID ARTHRITIS
     Route: 048
     Dates: start: 20141029
  7. GAVISCON [Concomitant]
     Active Substance: ALUMINUM HYDROXIDE\MAGNESIUM CARBONATE
     Indication: PRODUCT USED FOR UNKNOWN INDICATION
     Dosage: 5-10ML FOUR TIMES A DAY.
     Route: 048
  8. PRIMIDONE. [Concomitant]
     Active Substance: PRIMIDONE
     Indication: EPILEPSY
     Dosage: 1 TO 2 DAILY.
     Route: 048
  9. METHOTREXATE [Suspect]
     Active Substance: METHOTREXATE
     Dosage: INCREASED TO 20MG WEEKLY OVER APPROXIMATELY TWO MONTHS
     Route: 048
     Dates: start: 20141128, end: 20141212
  10. METHOTREXATE [Suspect]
     Active Substance: METHOTREXATE
     Dosage: 15 MG, QW
     Route: 048
     Dates: start: 20150204, end: 20150507
  11. METHOTREXATE [Suspect]
     Active Substance: METHOTREXATE
     Dosage: INCREASED TO 20MG WEEKLY OVER APPROXIMATELY TWO MONTHS
     Route: 048
     Dates: start: 20141212, end: 20141226
  12. QUININE SULPHATE [Concomitant]
     Active Substance: QUININE SULFATE
     Indication: PRODUCT USED FOR UNKNOWN INDICATION
     Dosage: AT BEDTIME.
     Route: 048
  13. METHOTREXATE [Suspect]
     Active Substance: METHOTREXATE
     Indication: RHEUMATOID ARTHRITIS
     Dosage: INCREASED TO 20MG WEEKLY OVER APPROXIMATELY TWO MONTHS
     Route: 048
     Dates: start: 20141029, end: 20141128
  14. METHOTREXATE [Suspect]
     Active Substance: METHOTREXATE
     Dosage: INCREASED TO 20MG WEEKLY OVER APPROXIMATELY TWO MONTHS
     Route: 048
     Dates: start: 20141226, end: 20150204
  15. CLOTRIMAZOLE. [Concomitant]
     Active Substance: CLOTRIMAZOLE
     Indication: PRODUCT USED FOR UNKNOWN INDICATION
     Route: 061
  16. OMEPRAZOLE. [Concomitant]
     Active Substance: OMEPRAZOLE
     Indication: PRODUCT USED FOR UNKNOWN INDICATION
     Route: 048

REACTIONS (10)
  - Oxygen saturation decreased [Not Recovered/Not Resolved]
  - Pneumonitis [Fatal]
  - Eosinophilia [Unknown]
  - Cough [Unknown]
  - Dyspnoea [Unknown]
  - Hypotension [Not Recovered/Not Resolved]
  - Hypoxia [Not Recovered/Not Resolved]
  - Respiratory rate increased [Not Recovered/Not Resolved]
  - Pulmonary embolism [Not Recovered/Not Resolved]
  - Infection [Not Recovered/Not Resolved]

NARRATIVE: CASE EVENT DATE: 20150420
